FAERS Safety Report 11928835 (Version 2)
Quarter: 2016Q1

REPORT INFORMATION
  Report Type: Spontaneous
  Country: US (occurrence: US)
  Receive Date: 20160119
  Receipt Date: 20160208
  Transmission Date: 20160526
  Serious: Yes (Life-Threatening, Hospitalization)
  Sender: FDA-Public Use
  Company Number: US-TEVA-627002USA

PATIENT
  Age: 25 Year
  Sex: Male
  Weight: 80 kg

DRUGS (22)
  1. OXYGEN. [Concomitant]
     Active Substance: OXYGEN
  2. CEFAZOLIN [Concomitant]
     Active Substance: CEFAZOLIN
     Route: 042
  3. FENTANYL. [Interacting]
     Active Substance: FENTANYL
     Indication: PAIN
  4. FENTANYL. [Interacting]
     Active Substance: FENTANYL
     Route: 042
  5. METRONIDAZOLE. [Interacting]
     Active Substance: METRONIDAZOLE
     Route: 042
  6. PROPOFOL. [Concomitant]
     Active Substance: PROPOFOL
     Route: 042
  7. ERTAPENEM [Concomitant]
     Active Substance: ERTAPENEM
     Indication: ANTIBIOTIC PROPHYLAXIS
     Dosage: 1 LTS
  8. SEVOFLURANE. [Concomitant]
     Active Substance: SEVOFLURANE
     Dosage: 1LTS
  9. CISATRACURIUM. [Concomitant]
     Active Substance: CISATRACURIUM
     Route: 042
  10. METOCLOPRAMIDE. [Interacting]
     Active Substance: METOCLOPRAMIDE
     Route: 042
  11. FLUOXETINE [Interacting]
     Active Substance: FLUOXETINE HYDROCHLORIDE
  12. ONDANSETRON [Interacting]
     Active Substance: ONDANSETRON
     Route: 042
  13. METHYLTHIONINIUM CHLORIDE [Interacting]
     Active Substance: METHYLENE BLUE
     Dosage: 100 MG WAS INTRAVENOUSLY ADMINISTERED TWICE
     Route: 042
  14. SUCCINYLCHOLINE CHLORIDE. [Concomitant]
     Active Substance: SUCCINYLCHOLINE CHLORIDE
     Route: 042
  15. GLYCOPYRRONIUM [Concomitant]
     Active Substance: GLYCOPYRRONIUM
     Route: 042
  16. MORPHINE [Concomitant]
     Active Substance: MORPHINE
     Route: 042
  17. FLUOXETINE [Suspect]
     Active Substance: FLUOXETINE HYDROCHLORIDE
     Indication: DEPRESSION
     Route: 065
  18. MIDAZOLAM [Concomitant]
     Active Substance: MIDAZOLAM\MIDAZOLAM HYDROCHLORIDE
     Route: 042
  19. ETOMIDATE. [Concomitant]
     Active Substance: ETOMIDATE
     Route: 042
  20. HYDROMORPHONE [Concomitant]
     Active Substance: HYDROMORPHONE
     Route: 042
  21. NEOSTIGMINE [Concomitant]
     Active Substance: NEOSTIGMINE
     Route: 042
  22. HALOPERIDOL. [Concomitant]
     Active Substance: HALOPERIDOL
     Route: 042

REACTIONS (8)
  - Blood creatinine increased [Recovered/Resolved]
  - Rhabdomyolysis [Unknown]
  - Metabolic acidosis [Unknown]
  - Appendicitis perforated [Unknown]
  - Serotonin syndrome [Unknown]
  - Pseudomonal sepsis [Unknown]
  - Drug interaction [Unknown]
  - White blood cell count increased [Unknown]
